FAERS Safety Report 6492426-X (Version None)
Quarter: 2009Q4

REPORT INFORMATION
  Report Type: 
  Country: None (occurrence: None)
  Receive Date: 20091214
  Receipt Date: 20091204
  Transmission Date: 20100525
  Serious: Yes (Hospitalization)
  Sender: FDA-Public Use
  Company Number: IL-ROCHE-671242

PATIENT
  Sex: Female
  Weight: 82 kg

DRUGS (3)
  1. CAPECITABINE [Suspect]
     Indication: RECTAL CANCER
     Dosage: DOSE: ON DAY 1-DAY 15 OF 3 WEEK CYCLE; TOTAL DOSE GIVEN 500 MG
     Route: 048
     Dates: start: 20090712
  2. CAPECITABINE [Suspect]
     Route: 048
  3. OXALIPLATIN [Suspect]
     Indication: RECTAL CANCER
     Dosage: FREQUENCY: ON D1, 8, 15, 22 AND 29
     Route: 042
     Dates: start: 20090712

REACTIONS (3)
  - DIARRHOEA [None]
  - HYPERKALAEMIA [None]
  - HYPONATRAEMIA [None]
